FAERS Safety Report 4726109-0 (Version None)
Quarter: 2005Q3

REPORT INFORMATION
  Report Type: 
  Country: None (occurrence: None)
  Receive Date: 20050727
  Receipt Date: 20050719
  Transmission Date: 20060218
  Serious: Yes (Other)
  Sender: FDA-Public Use
  Company Number: PHBS2005FR10360

PATIENT
  Age: 67 Year
  Sex: Male

DRUGS (3)
  1. AZATHIOPRINE [Suspect]
     Indication: RENAL TRANSPLANT
  2. PREDNISOLONE [Concomitant]
  3. CYCLOSPORINE [Suspect]
     Indication: RENAL TRANSPLANT

REACTIONS (4)
  - BLOOD CREATININE INCREASED [None]
  - DISEASE RECURRENCE [None]
  - GLOMERULONEPHRITIS MEMBRANOUS [None]
  - PROTEINURIA [None]
